FAERS Safety Report 9929297 (Version 1)
Quarter: 2014Q1

REPORT INFORMATION
  Report Type: Spontaneous
  Country: US (occurrence: None)
  Receive Date: 20140109
  Receipt Date: 20140109
  Transmission Date: 20141002
  Serious: Yes (Hospitalization)
  Sender: FDA-Public Use
  Company Number: 370786

PATIENT
  Age: 49 Year
  Sex: Male

DRUGS (1)
  1. LEVEMIR FLEXPEN (INSULIN DETEMIR) SOLUTION FOR INJECTION, .0024MOL/L [Suspect]
     Dosage: 70 UNITS DAILY AT BEDTIME, SUBCUTANEOUS
     Route: 058
     Dates: end: 201208

REACTIONS (2)
  - Device malfunction [None]
  - Incorrect dose administered [None]
